FAERS Safety Report 20097863 (Version 1)
Quarter: 2021Q4

REPORT INFORMATION
  Report Type: Spontaneous
  Country: None (occurrence: US)
  Receive Date: 20211122
  Receipt Date: 20211122
  Transmission Date: 20220303
  Serious: No
  Sender: FDA-Public Use
  Company Number: US-Ascend Therapeutics US, LLC-2122143

PATIENT
  Age: 57 Year
  Sex: Female
  Weight: 51.364 kg

DRUGS (4)
  1. ESTROGEL [Suspect]
     Active Substance: ESTRADIOL
     Indication: Menopause
     Route: 061
     Dates: start: 2016, end: 2020
  2. ESTROGEL [Suspect]
     Active Substance: ESTRADIOL
  3. ESTROGEL [Suspect]
     Active Substance: ESTRADIOL
     Route: 061
     Dates: start: 2016, end: 2020
  4. ESTROGEL [Suspect]
     Active Substance: ESTRADIOL
     Route: 061
     Dates: start: 2020

REACTIONS (2)
  - Incorrect dose administered [None]
  - Product use in unapproved indication [None]

NARRATIVE: CASE EVENT DATE: 20160101
